FAERS Safety Report 9321352 (Version 1)
Quarter: 2013Q2

REPORT INFORMATION
  Report Type: Spontaneous
  Country: US (occurrence: US)
  Receive Date: 20130531
  Receipt Date: 20130531
  Transmission Date: 20140414
  Serious: Yes (Other)
  Sender: FDA-Public Use
  Company Number: US-PFIZER INC-2013164616

PATIENT
  Age: 46 Year
  Sex: Male
  Weight: 75.74 kg

DRUGS (11)
  1. LYRICA [Suspect]
     Dosage: 150 MG, 3X/DAY
  2. LYRICA [Suspect]
     Dosage: 150 MG, 2X/DAY
     Route: 048
     Dates: start: 20121026
  3. DEPO-MEDROL [Suspect]
     Dosage: 80 MG, SINGLE
     Route: 030
     Dates: start: 20121026, end: 20121026
  4. DEPO-MEDROL [Suspect]
     Dosage: 80 MG, 1X/DAY
     Route: 030
     Dates: start: 20130404, end: 20130408
  5. ZYRTEC [Suspect]
     Dosage: 10 MG, UNK
  6. NEXIUM [Concomitant]
     Dosage: UNK
     Route: 048
  7. REMERON [Concomitant]
     Dosage: 30 MG, 1X/DAY (AT BEDTIME)
     Route: 048
  8. FLONASE [Concomitant]
     Dosage: 50 UG/ACTUATION, 2 SPRAYS DAILY AS NEEDED
     Route: 045
  9. FLEXERIL [Concomitant]
     Dosage: 10 MG, 3X/DAY
     Route: 048
  10. LORTAB [Concomitant]
     Indication: PAIN
     Dosage: HYDROCODONE 10MG/ ACETAMINOPHEN 500MG
     Route: 048
     Dates: start: 20121026, end: 20121128
  11. LORTAB [Concomitant]
     Dosage: HYDROCODONE 10/ ACETAMINOPHEN 325 2X/DAY PRN
     Route: 048

REACTIONS (13)
  - Cervical vertebral fracture [Unknown]
  - Rotator cuff syndrome [Unknown]
  - Neck pain [Unknown]
  - Musculoskeletal pain [Unknown]
  - Pain [Unknown]
  - Headache [Unknown]
  - Hypoaesthesia [Unknown]
  - Arthralgia [Unknown]
  - Back pain [Unknown]
  - Musculoskeletal stiffness [Unknown]
  - Myofascial pain syndrome [Unknown]
  - Spinal osteoarthritis [Unknown]
  - Tendon disorder [Unknown]
